FAERS Safety Report 6075834-0 (Version None)
Quarter: 2009Q1

REPORT INFORMATION
  Report Type: 
  Country: None (occurrence: None)
  Receive Date: 20090212
  Receipt Date: 20090202
  Transmission Date: 20090719
  Serious: Yes (Life-Threatening)
  Sender: FDA-Public Use
  Company Number: AU-PFIZER INC-2009166548

PATIENT

DRUGS (3)
  1. CHAMPIX [Suspect]
     Indication: TOBACCO USER
     Dosage: UNK
     Dates: start: 20081010, end: 20081113
  2. CEPHALEXIN [Concomitant]
  3. DIPHTHERIA-TETANUS-PERTUSSIS VACCINE [Concomitant]

REACTIONS (4)
  - DEPRESSION [None]
  - IMPAIRED WORK ABILITY [None]
  - SUICIDAL IDEATION [None]
  - TEARFULNESS [None]
